FAERS Safety Report 14266303 (Version 2)
Quarter: 2018Q1

REPORT INFORMATION
  Report Type: Spontaneous
  Country: US (occurrence: US)
  Receive Date: 20171210
  Receipt Date: 20180125
  Transmission Date: 20180508
  Serious: Yes (Other)
  Sender: FDA-Public Use
  Company Number: US-ASTRAZENECA-2017SF24601

PATIENT
  Sex: Female
  Weight: 113.4 kg

DRUGS (1)
  1. SEROQUEL [Suspect]
     Active Substance: QUETIAPINE FUMARATE
     Indication: BIPOLAR DISORDER
     Dosage: EITHER 300 AND 600 MG OR 150 AND 300 MG, TAKEN EITHER ONCE OR TWICE DAILY
     Route: 048

REACTIONS (9)
  - Neuroleptic malignant syndrome [Unknown]
  - Thyroid disorder [Unknown]
  - Confusional state [Unknown]
  - Feeling abnormal [Unknown]
  - Mobility decreased [Unknown]
  - Tremor [Unknown]
  - Seizure [Unknown]
  - Malaise [Unknown]
  - Myocardial infarction [Unknown]
